FAERS Safety Report 4380217-5 (Version None)
Quarter: 2004Q2

REPORT INFORMATION
  Report Type: 
  Country: None (occurrence: None)
  Receive Date: 20040616
  Receipt Date: 20040616
  Transmission Date: 20050107
  Serious: Yes (Other)
  Sender: FDA-Public Use
  Company Number: None

PATIENT

DRUGS (1)
  1. PROGESTERONE [Suspect]

REACTIONS (3)
  - DISCOMFORT [None]
  - MEDICATION ERROR [None]
  - SWELLING [None]
